FAERS Safety Report 4500977-X (Version None)
Quarter: 2004Q4

REPORT INFORMATION
  Report Type: 
  Country: None (occurrence: None)
  Receive Date: 20041109
  Receipt Date: 20041026
  Transmission Date: 20050328
  Serious: Yes (Hospitalization, Other)
  Sender: FDA-Public Use
  Company Number: USA0401082250

PATIENT
  Age: 37 Year
  Sex: Female

DRUGS (1)
  1. HUMULIN 70/30 [Suspect]
     Indication: DIABETES MELLITUS
     Dates: start: 19980101

REACTIONS (7)
  - BLOOD GLUCOSE INCREASED [None]
  - DIABETIC COMA [None]
  - HYPOVENTILATION [None]
  - INFLUENZA LIKE ILLNESS [None]
  - PNEUMONIA [None]
  - RENAL FAILURE [None]
  - TREATMENT NONCOMPLIANCE [None]
